FAERS Safety Report 17185797 (Version 3)
Quarter: 2020Q4

REPORT INFORMATION
  Report Type: Report from Study
  Country: US (occurrence: US)
  Receive Date: 20191220
  Receipt Date: 20201009
  Transmission Date: 20210113
  Serious: Yes (Hospitalization, Other)
  Sender: FDA-Public Use
  Company Number: US-EMD SERONO-9130283

PATIENT
  Age: 73 Year
  Sex: Male

DRUGS (4)
  1. REBIF [Suspect]
     Active Substance: INTERFERON BETA-1A
     Route: 058
     Dates: start: 2019, end: 2019
  2. BABY ASPIRIN [Concomitant]
     Active Substance: ASPIRIN
     Indication: PRODUCT USED FOR UNKNOWN INDICATION
  3. REBIF [Suspect]
     Active Substance: INTERFERON BETA-1A
     Indication: MULTIPLE SCLEROSIS
     Route: 058
     Dates: start: 20190930
  4. REBIF [Suspect]
     Active Substance: INTERFERON BETA-1A
     Route: 058
     Dates: end: 202001

REACTIONS (14)
  - Asthenia [Recovering/Resolving]
  - Limb discomfort [Unknown]
  - Fall [Unknown]
  - Eye disorder [Unknown]
  - Hypokinesia [Recovering/Resolving]
  - Malaise [Unknown]
  - Cerebrovascular accident [Not Recovered/Not Resolved]
  - Haemorrhage [Unknown]
  - Vomiting [Recovering/Resolving]
  - Incoherent [Unknown]
  - Memory impairment [Unknown]
  - Wound [Unknown]
  - Hypophagia [Not Recovered/Not Resolved]
  - Restlessness [Unknown]

NARRATIVE: CASE EVENT DATE: 2019
